FAERS Safety Report 9276246 (Version 2)
Quarter: 2013Q2

REPORT INFORMATION
  Report Type: Spontaneous
  Country: US (occurrence: None)
  Receive Date: 20130501
  Receipt Date: 20130515
  Transmission Date: 20140414
  Serious: Yes (Other)
  Sender: FDA-Public Use
  Company Number: EUS-2013-00224

PATIENT
  Sex: Female

DRUGS (4)
  1. ERWINAZE [Suspect]
     Indication: ACUTE LYMPHOCYTIC LEUKAEMIA
     Dosage: 14750 IU, IV
     Dates: start: 20130319, end: 20130319
  2. CYTARABINE [Concomitant]
  3. 6-THIOGUANINE(TIOGUANINE) [Concomitant]
  4. CYTOXAN [Concomitant]

REACTIONS (1)
  - Bone marrow failure [None]
